FAERS Safety Report 6291553-X (Version None)
Quarter: 2009Q3

REPORT INFORMATION
  Report Type: 
  Country: None (occurrence: None)
  Receive Date: 20090730
  Receipt Date: 20090723
  Transmission Date: 20100115
  Serious: Yes (Life-Threatening, Other)
  Sender: FDA-Public Use
  Company Number: PHEH2009US07340

PATIENT
  Sex: Female
  Weight: 64.853 kg

DRUGS (3)
  1. DIOVAN HCT [Suspect]
     Indication: HYPERTENSION
     Dosage: 80/12.5 MG, BID
     Route: 048
     Dates: start: 20090611, end: 20090629
  2. DIOVAN HCT [Suspect]
     Dosage: 320/12.5 MG, DAILY
     Route: 048
     Dates: start: 20090629
  3. DIOVAN HCT [Suspect]
     Dosage: 80/12.5 MG, BID
     Route: 048

REACTIONS (3)
  - BLOOD PRESSURE SYSTOLIC INCREASED [None]
  - CARDIAC DISORDER [None]
  - HYPERTENSION [None]
